FAERS Safety Report 9867609 (Version 1)
Quarter: 2014Q1

REPORT INFORMATION
  Report Type: Spontaneous
  Country: US (occurrence: US)
  Receive Date: 20140204
  Receipt Date: 20140204
  Transmission Date: 20141002
  Serious: No
  Sender: FDA-Public Use
  Company Number: US-GALDERMA-US13003290

PATIENT
  Age: 25 Year
  Sex: Female

DRUGS (5)
  1. EPIDUO (ADAPALENE, BENZOYL PEROXIDE) GEL 0.1% / 2.5% [Suspect]
     Indication: ACNE
     Route: 061
     Dates: start: 201304, end: 201309
  2. CETAPHIL DERMACONTROL SPF 30 [Suspect]
     Indication: DRY SKIN PROPHYLAXIS
     Route: 061
     Dates: start: 201305, end: 201305
  3. CERAVE AM FACIAL MOISTURIZING [Concomitant]
     Indication: DRY SKIN PROPHYLAXIS
     Route: 061
     Dates: start: 201305, end: 20131017
  4. NEUTROGENA OIL FREE ACNE WASH [Concomitant]
     Indication: THERAPEUTIC SKIN CARE TOPICAL
     Route: 061
     Dates: end: 2013
  5. NEUTRAGENA ULTRA CLEANSING GEL [Concomitant]
     Indication: THERAPEUTIC SKIN CARE TOPICAL
     Route: 061
     Dates: start: 2013, end: 20131017

REACTIONS (4)
  - Dry skin [Recovering/Resolving]
  - Skin irritation [Recovered/Resolved]
  - Skin burning sensation [Recovered/Resolved]
  - Acne [Recovered/Resolved]
